FAERS Safety Report 7369737-9 (Version None)
Quarter: 2011Q1

REPORT INFORMATION
  Report Type: 
  Country: None (occurrence: None)
  Receive Date: 20110323
  Receipt Date: 20110317
  Transmission Date: 20110831
  Serious: Yes (Other)
  Sender: FDA-Public Use
  Company Number: CA-PFIZER INC-2011050303

PATIENT
  Age: 58 Year
  Sex: Female

DRUGS (3)
  1. CHAMPIX [Suspect]
     Dosage: 0.5 MG, 1X/DAY
     Dates: start: 20110315
  2. CHAMPIX [Suspect]
     Dosage: 1 MG, 1X/DAY
     Dates: start: 20110308, end: 20110314
  3. CHAMPIX [Suspect]
     Indication: SMOKING CESSATION THERAPY
     Dosage: UNK
     Dates: start: 20110116

REACTIONS (26)
  - IRRITABILITY [None]
  - INITIAL INSOMNIA [None]
  - NECK PAIN [None]
  - LETHARGY [None]
  - RASH [None]
  - MUSCLE SPASMS [None]
  - NAUSEA [None]
  - OROPHARYNGEAL PAIN [None]
  - ORAL PAIN [None]
  - VISUAL IMPAIRMENT [None]
  - APHTHOUS STOMATITIS [None]
  - VISUAL BRIGHTNESS [None]
  - ABNORMAL DREAMS [None]
  - EPISTAXIS [None]
  - VISION BLURRED [None]
  - MOOD SWINGS [None]
  - INSOMNIA [None]
  - HEADACHE [None]
  - TERMINAL INSOMNIA [None]
  - ORAL HERPES [None]
  - BREATH ODOUR [None]
  - TONGUE DISORDER [None]
  - DIARRHOEA [None]
  - FLATULENCE [None]
  - MIDDLE INSOMNIA [None]
  - MUSCULOSKELETAL PAIN [None]
